FAERS Safety Report 8171590-0 (Version None)
Quarter: 2012Q1

REPORT INFORMATION
  Report Type: 
  Country: None (occurrence: None)
  Receive Date: 20120104
  Receipt Date: 20111111
  Transmission Date: 20120608
  Serious: No
  Sender: FDA-Public Use
  Company Number: 2011HGS-002785

PATIENT
  Age: 56 Year
  Sex: Female
  Weight: 104.3273 kg

DRUGS (3)
  1. PLAQUENIL [Concomitant]
  2. PREDNISONE TAB [Concomitant]
  3. BENLYSTA [Suspect]
     Dosage: 1 IN 28 D, INTRAVENOUS DRIP
     Route: 041

REACTIONS (4)
  - DIARRHOEA [None]
  - NASOPHARYNGITIS [None]
  - NASAL CONGESTION [None]
  - COUGH [None]
